FAERS Safety Report 6028692-4 (Version None)
Quarter: 2009Q1

REPORT INFORMATION
  Report Type: 
  Country: None (occurrence: None)
  Receive Date: 20090106
  Receipt Date: 20081217
  Transmission Date: 20090719
  Serious: Yes (Other)
  Sender: FDA-Public Use
  Company Number: TR-ELI_LILLY_AND_COMPANY-TR200901000099

PATIENT
  Age: 25 Year
  Sex: Male
  Weight: 66 kg

DRUGS (2)
  1. ZYPREXA [Suspect]
     Indication: BIPOLAR DISORDER
     Dosage: 5 MG, DAILY (1/D)
     Dates: start: 20080101
  2. DEPAKOTE [Concomitant]
     Indication: BIPOLAR DISORDER
     Dosage: 500 MG, DAILY (1/D)
     Route: 048
     Dates: end: 20081101

REACTIONS (2)
  - WEIGHT INCREASED [None]
  - YAWNING [None]
